FAERS Safety Report 7476034-X (Version None)
Quarter: 2011Q2

REPORT INFORMATION
  Report Type: 
  Country: None (occurrence: None)
  Receive Date: 20110512
  Receipt Date: 20110504
  Transmission Date: 20111010
  Serious: Yes (Other)
  Sender: FDA-Public Use
  Company Number: US-AMGEN-USASP2011023293

PATIENT
  Sex: Male

DRUGS (4)
  1. ALLOPURINOL [Concomitant]
  2. ENBREL [Suspect]
     Indication: PSORIATIC ARTHROPATHY
     Dosage: 25 MG, 2 TIMES/WK
     Dates: start: 20070101, end: 20110201
  3. DIOVAN [Concomitant]
  4. ENBREL [Suspect]
     Indication: RHEUMATOID ARTHRITIS
     Dosage: 25 MG, 2 TIMES/WK
     Dates: start: 20070101, end: 20110201

REACTIONS (3)
  - EYE INFLAMMATION [None]
  - PAIN [None]
  - VISION BLURRED [None]
